FAERS Safety Report 5019456-9 (Version None)
Quarter: 2006Q2

REPORT INFORMATION
  Report Type: 
  Country: None (occurrence: None)
  Receive Date: 20060606
  Receipt Date: 20060508
  Transmission Date: 20061013
  Serious: Yes (Other)
  Sender: FDA-Public Use
  Company Number: PHEH2006US06272

PATIENT
  Sex: Female

DRUGS (1)
  1. FORADIL [Suspect]
     Dosage: UNK, BID
     Dates: end: 20060507

REACTIONS (7)
  - DYSPHAGIA [None]
  - MASTICATION DISORDER [None]
  - ORAL FUNGAL INFECTION [None]
  - PRODUCTIVE COUGH [None]
  - VISION BLURRED [None]
  - VISUAL ACUITY REDUCED [None]
  - VISUAL DISTURBANCE [None]
